FAERS Safety Report 5350382-1 (Version None)
Quarter: 2007Q2

REPORT INFORMATION
  Report Type: 
  Country: None (occurrence: None)
  Receive Date: 20070605
  Receipt Date: 20070605
  Transmission Date: 20071010
  Serious: Yes (Life-Threatening)
  Sender: FDA-Public Use
  Company Number: None

PATIENT
  Age: 17 Year
  Sex: Female

DRUGS (1)
  1. CONCERTA [Suspect]
     Indication: ATTENTION DEFICIT/HYPERACTIVITY DISORDER
     Dosage: 54 MG PO M-F
     Route: 048

REACTIONS (9)
  - AGGRESSION [None]
  - APNOEIC ATTACK [None]
  - CARDIAC ARREST [None]
  - CEREBRAL ISCHAEMIA [None]
  - COMA [None]
  - EYE ROLLING [None]
  - FALL [None]
  - HEAD INJURY [None]
  - TORSADE DE POINTES [None]
